FAERS Safety Report 18289329 (Version 1)
Quarter: 2020Q3

REPORT INFORMATION
  Report Type: Spontaneous
  Country: AE (occurrence: AE)
  Receive Date: 20200921
  Receipt Date: 20200921
  Transmission Date: 20201103
  Serious: Yes (Other)
  Sender: FDA-Public Use
  Company Number: AE-ASTRAZENECA-2020SF18488

PATIENT
  Age: 17400 Day
  Sex: Male

DRUGS (1)
  1. TAGRISSO [Suspect]
     Active Substance: OSIMERTINIB
     Indication: NON-SMALL CELL LUNG CANCER
     Route: 048
     Dates: start: 20190716

REACTIONS (1)
  - Pulmonary mass [Unknown]

NARRATIVE: CASE EVENT DATE: 20200910
